FAERS Safety Report 9364908 (Version 11)
Quarter: 2015Q3

REPORT INFORMATION
  Report Type: Spontaneous
  Country: US (occurrence: US)
  Receive Date: 20130624
  Receipt Date: 20150728
  Transmission Date: 20151125
  Serious: Yes (Hospitalization, Other)
  Sender: FDA-Public Use
  Company Number: US-009507513-1306USA008992

PATIENT
  Sex: Female
  Weight: 58.5 kg

DRUGS (8)
  1. ALENDRONATE SODIUM. [Suspect]
     Active Substance: ALENDRONATE SODIUM
     Dosage: 70 MG, QW, TAKE ON SAME DAY EVERY WEEK W/FULL GLASS OF WATER
     Route: 048
     Dates: start: 20071001, end: 20110502
  2. VITAMINS (UNSPECIFIED) [Concomitant]
     Active Substance: VITAMINS
     Indication: PRODUCT USED FOR UNKNOWN INDICATION
     Dosage: UNK
     Route: 065
     Dates: start: 1990
  3. FOSAMAX [Suspect]
     Active Substance: ALENDRONATE SODIUM
     Indication: PRODUCT USED FOR UNKNOWN INDICATION
     Dosage: 10 MG, QD
     Route: 048
     Dates: start: 20001204
  4. PREDNISONE. [Concomitant]
     Active Substance: PREDNISONE
     Indication: POLYMYOSITIS
     Dosage: 5 MG, QD
     Route: 065
     Dates: start: 1990
  5. FOSAMAX [Suspect]
     Active Substance: ALENDRONATE SODIUM
     Indication: OSTEOPENIA
     Dosage: 70 MG, QW, TAKE ON SAME DAY EVERY WEEK
     Route: 048
     Dates: start: 20050524, end: 20110624
  6. PRILOSEC [Concomitant]
     Active Substance: OMEPRAZOLE MAGNESIUM
     Indication: DYSPEPSIA
     Dosage: 20 MG, QD
     Route: 048
     Dates: start: 2003
  7. LIPITOR [Concomitant]
     Active Substance: ATORVASTATIN CALCIUM
     Indication: BLOOD CHOLESTEROL INCREASED
     Dosage: 40 MG, QD
     Route: 065
     Dates: start: 2003
  8. OMEPRAZOLE. [Concomitant]
     Active Substance: OMEPRAZOLE
     Indication: PRODUCT USED FOR UNKNOWN INDICATION
     Dosage: UNK
     Route: 065
     Dates: start: 2003

REACTIONS (36)
  - Biopsy breast [Unknown]
  - Femur fracture [Recovered/Resolved]
  - Incontinence [Unknown]
  - Tendon sheath incision [Unknown]
  - Osteoporosis [Not Recovered/Not Resolved]
  - Tendonitis [Unknown]
  - Fatigue [Unknown]
  - Unresponsive to stimuli [Unknown]
  - Low turnover osteopathy [Unknown]
  - Anxiety [Unknown]
  - Bone contusion [Unknown]
  - Bone pain [Unknown]
  - Intramedullary rod insertion [Unknown]
  - Clavicle fracture [Unknown]
  - Anaemia postoperative [Unknown]
  - Rotator cuff syndrome [Recovering/Resolving]
  - Meniscus injury [Unknown]
  - Tonsillectomy [Unknown]
  - Arthralgia [Unknown]
  - Intramedullary rod insertion [Unknown]
  - Femur fracture [Recovered/Resolved]
  - Osteoarthritis [Unknown]
  - Joint effusion [Unknown]
  - Exostosis [Unknown]
  - Abdominal discomfort [Unknown]
  - Hyperlipidaemia [Unknown]
  - Vaginal cyst excision [Unknown]
  - Enthesopathy [Unknown]
  - Patellofemoral pain syndrome [Recovering/Resolving]
  - Fall [Unknown]
  - Depression [Unknown]
  - Tendonitis [Unknown]
  - Synovial cyst [Unknown]
  - Pain in extremity [Unknown]
  - Arthralgia [Unknown]
  - Vitamin D deficiency [Unknown]

NARRATIVE: CASE EVENT DATE: 2003
